FAERS Safety Report 11886723 (Version 1)
Quarter: 2016Q1

REPORT INFORMATION
  Report Type: Spontaneous
  Country: US (occurrence: US)
  Receive Date: 20160104
  Receipt Date: 20160104
  Transmission Date: 20160526
  Serious: No
  Sender: FDA-Public Use
  Company Number: US-APOTEX-2015AP007415

PATIENT
  Age: 77 Year
  Sex: Male

DRUGS (2)
  1. MEGESTROL ACETATE ORAL SUSPENSION USP [Suspect]
     Active Substance: MEGESTROL ACETATE
     Indication: DECREASED APPETITE
     Dosage: UNK
     Route: 065
  2. MEGESTROL ACETATE ORAL SUSPENSION USP [Suspect]
     Active Substance: MEGESTROL ACETATE
     Indication: WEIGHT DECREASED

REACTIONS (1)
  - Aggression [Recovered/Resolved]
